FAERS Safety Report 19167321 (Version 4)
Quarter: 2022Q1

REPORT INFORMATION
  Report Type: Spontaneous
  Country: GR (occurrence: GR)
  Receive Date: 20210422
  Receipt Date: 20220106
  Transmission Date: 20220423
  Serious: Yes (Hospitalization, Other)
  Sender: FDA-Public Use
  Company Number: GR-MLMSERVICE-20210405-2821831-1

PATIENT
  Age: 42 Year
  Sex: Female
  Weight: 71 kg

DRUGS (1)
  1. LEVONORGESTREL [Suspect]
     Active Substance: LEVONORGESTREL
     Indication: Post coital contraception
     Dosage: 1.5 MILLIGRAM, SINGLE
     Route: 048
     Dates: start: 20200412, end: 20200412

REACTIONS (8)
  - Pulmonary alveolar haemorrhage [Recovered/Resolved]
  - Haemoptysis [Unknown]
  - Hypoxia [Unknown]
  - Anaemia [Unknown]
  - Haematocrit decreased [Unknown]
  - Cough [Unknown]
  - Leukocytosis [Unknown]
  - Hypersensitivity [Unknown]

NARRATIVE: CASE EVENT DATE: 20200415
